FAERS Safety Report 6654624-1 (Version None)
Quarter: 2010Q1

REPORT INFORMATION
  Report Type: 
  Country: None (occurrence: None)
  Receive Date: 20100326
  Receipt Date: 20100316
  Transmission Date: 20100710
  Serious: No
  Sender: FDA-Public Use
  Company Number: US-ABBOTT-98P-163-0157783-00

PATIENT
  Sex: Female

DRUGS (13)
  1. SYNTHROID [Suspect]
     Indication: HORMONE REPLACEMENT THERAPY
     Route: 048
     Dates: start: 19970301
  2. SYNTHROID [Suspect]
     Dates: start: 19970101
  3. SYNTHROID [Suspect]
     Dates: start: 19980101
  4. PEPCID [Concomitant]
     Indication: GASTROOESOPHAGEAL REFLUX DISEASE
     Route: 048
     Dates: start: 19890101
  5. GENERIC OSCAL () [Concomitant]
     Indication: BLOOD CALCIUM DECREASED
     Route: 048
     Dates: start: 19970501
  6. ESTRADERM [Concomitant]
     Indication: HORMONE REPLACEMENT THERAPY
  7. VALIUM [Concomitant]
     Indication: DRUG USE FOR UNKNOWN INDICATION
  8. ADVAIR DISKUS 100/50 [Concomitant]
     Indication: ASTHMA
  9. ALBUTEROL [Concomitant]
     Indication: DRUG USE FOR UNKNOWN INDICATION
  10. ZYRTEC [Concomitant]
     Indication: HYPERSENSITIVITY
  11. CAL + D 600 [Concomitant]
     Indication: DRUG USE FOR UNKNOWN INDICATION
  12. M.V.I. [Concomitant]
     Indication: DRUG USE FOR UNKNOWN INDICATION
  13. PREVACID [Concomitant]
     Indication: DRUG USE FOR UNKNOWN INDICATION

REACTIONS (5)
  - MENORRHAGIA [None]
  - PALPITATIONS [None]
  - RECURRENT CANCER [None]
  - THYROID CANCER [None]
  - UTERINE CANCER [None]
